FAERS Safety Report 8548321-5 (Version None)
Quarter: 2012Q3

REPORT INFORMATION
  Report Type: 
  Country: None (occurrence: None)
  Receive Date: 20120730
  Receipt Date: 20120719
  Transmission Date: 20120928
  Serious: Yes (Hospitalization)
  Sender: FDA-Public Use
  Company Number: US-JNJFOC-20120710949

PATIENT
  Sex: Male
  Weight: 105.69 kg

DRUGS (9)
  1. DILAUDID [Concomitant]
     Indication: PAIN
     Dates: start: 20120331
  2. FLAGYL [Concomitant]
     Indication: CLOSTRIDIAL INFECTION
     Dates: start: 20120401, end: 20120401
  3. ZOFRAN [Concomitant]
     Indication: NAUSEA
     Route: 048
     Dates: start: 20120331
  4. REMICADE [Suspect]
     Indication: COLITIS ULCERATIVE
     Route: 042
     Dates: start: 20120401, end: 20120401
  5. PREDNISONE [Concomitant]
     Indication: COLITIS
     Dates: start: 20120403
  6. FERROUS SULFATE TAB [Concomitant]
     Indication: ANAEMIA
     Route: 048
     Dates: start: 20120331, end: 20120501
  7. ASACOL [Concomitant]
     Indication: COLITIS
     Route: 048
     Dates: start: 20120331, end: 20120501
  8. ROXICODONE [Concomitant]
     Indication: COLITIS
     Dates: start: 20120331
  9. PROTONIX [Concomitant]
     Indication: HYPERCHLORHYDRIA
     Route: 048
     Dates: start: 20120331

REACTIONS (7)
  - COLITIS ULCERATIVE [None]
  - ABASIA [None]
  - CLOSTRIDIAL INFECTION [None]
  - ARTHRITIS [None]
  - WEIGHT INCREASED [None]
  - BONE PAIN [None]
  - HYPERSENSITIVITY [None]
